FAERS Safety Report 6460059-7 (Version None)
Quarter: 2009Q4

REPORT INFORMATION
  Report Type: 
  Country: None (occurrence: None)
  Receive Date: 20091129
  Receipt Date: 20091119
  Transmission Date: 20100525
  Serious: Yes (Hospitalization)
  Sender: FDA-Public Use
  Company Number: PHHO2009DE12991

PATIENT
  Sex: Female
  Weight: 72 kg

DRUGS (2)
  1. MYCOPHENOLATE MOFETIL [Suspect]
     Indication: LUNG TRANSPLANT
     Dosage: 2000 MG
     Route: 048
     Dates: start: 20090517
  2. NEORAL [Suspect]
     Dosage: UNK
     Dates: start: 20090516

REACTIONS (4)
  - COUGH [None]
  - FEBRILE INFECTION [None]
  - MALAISE [None]
  - PYREXIA [None]
